FAERS Safety Report 4540126-5 (Version None)
Quarter: 2004Q4

REPORT INFORMATION
  Report Type: 
  Country: None (occurrence: None)
  Receive Date: 20041222
  Receipt Date: 20041206
  Transmission Date: 20050328
  Serious: Yes (Hospitalization, Other)
  Sender: FDA-Public Use
  Company Number: 105850

PATIENT
  Age: 64 Year
  Sex: Female

DRUGS (9)
  1. HERCEPTIN [Suspect]
     Indication: BREAST CANCER
     Dosage: SEE IMAGE
     Route: 042
     Dates: start: 20021121, end: 20021121
  2. HERCEPTIN [Suspect]
     Indication: BREAST CANCER
     Dosage: SEE IMAGE
     Route: 042
     Dates: start: 20021101
  3. DOCETAXEL (DOCETAXEL) [Suspect]
     Indication: BREAST CANCER
     Dosage: 150 MG, Q3W, INTRAVENOUS
     Route: 042
     Dates: start: 20021122
  4. CARBOPLATIN [Suspect]
     Indication: BREAST CANCER
     Dosage: 650 MG, Q3W, INTRAVENOUS
     Route: 042
     Dates: start: 20021122
  5. DEXAMETHASONE [Concomitant]
  6. GLUTATHIONE (GLUTATHIONE) [Concomitant]
  7. TROPISETRON (TROPISETRON HYDROCHLORIDE) [Concomitant]
  8. TORSEMIDE (TORSEMIDE) [Concomitant]
  9. VALSARTAN (VALSARTAN) [Concomitant]

REACTIONS (2)
  - CHEST DISCOMFORT [None]
  - HYPERTENSIVE CRISIS [None]
